FAERS Safety Report 11039316 (Version 1)
Quarter: 2015Q2

REPORT INFORMATION
  Report Type: Spontaneous
  Country: US (occurrence: US)
  Receive Date: 20150416
  Receipt Date: 20150416
  Transmission Date: 20150821
  Serious: No
  Sender: FDA-Public Use
  Company Number: US-GLAXOSMITHKLINE-US2015050418

PATIENT
  Age: 71 Year
  Sex: Female

DRUGS (1)
  1. ADVAIR DISKUS [Suspect]
     Active Substance: FLUTICASONE PROPIONATE\SALMETEROL XINAFOATE
     Indication: CARDIAC DISORDER
     Dosage: UNK, BID
     Route: 055
     Dates: start: 20150413

REACTIONS (2)
  - Device use error [Unknown]
  - Overdose [Unknown]

NARRATIVE: CASE EVENT DATE: 201504
